FAERS Safety Report 20302712 (Version 4)
Quarter: 2022Q4

REPORT INFORMATION
  Report Type: Spontaneous
  Country: US (occurrence: US)
  Receive Date: 20220106
  Receipt Date: 20221104
  Transmission Date: 20230112
  Serious: No
  Sender: FDA-Public Use
  Company Number: US-BIOVITRUM-2022US00068

PATIENT
  Sex: Female

DRUGS (1)
  1. KINERET [Suspect]
     Active Substance: ANAKINRA
     Indication: Rheumatoid arthritis
     Dates: start: 20211217

REACTIONS (4)
  - Musculoskeletal stiffness [Unknown]
  - Hepatitis A virus test positive [Unknown]
  - Injection site rash [Unknown]
  - Product quality issue [Unknown]
